FAERS Safety Report 5801805-2 (Version None)
Quarter: 2008Q3

REPORT INFORMATION
  Report Type: 
  Country: None (occurrence: None)
  Receive Date: 20080702
  Receipt Date: 20080623
  Transmission Date: 20090109
  Serious: Yes (Life-Threatening, Hospitalization)
  Sender: FDA-Public Use
  Company Number: 000716

PATIENT
  Age: 50 Year
  Sex: Male

DRUGS (6)
  1. BUSULFEX [Suspect]
     Indication: STEM CELL TRANSPLANT
     Dosage: 24 ML, INTRAVENOUS
     Route: 042
     Dates: start: 20071016, end: 20071019
  2. CYCLOPHOSPHAMIDE [Concomitant]
  3. NEUPOGEN [Concomitant]
  4. METHOTREXATE [Concomitant]
  5. TACROLIMUS [Concomitant]
  6. PREDNISOLONE [Concomitant]

REACTIONS (11)
  - BONE MARROW TRANSPLANT REJECTION [None]
  - CYTOMEGALOVIRUS VIRAEMIA [None]
  - DIARRHOEA [None]
  - FEBRILE NEUTROPENIA [None]
  - GRAFT VERSUS HOST DISEASE [None]
  - HEPATIC PAIN [None]
  - HYPOCALCAEMIA [None]
  - HYPONATRAEMIA [None]
  - MALAISE [None]
  - RASH [None]
  - STOMATITIS [None]
